FAERS Safety Report 12986096 (Version 3)
Quarter: 2016Q4

REPORT INFORMATION
  Report Type: Report from Study
  Country: US (occurrence: US)
  Receive Date: 20161130
  Receipt Date: 20161221
  Transmission Date: 20170207
  Serious: Yes (Other)
  Sender: FDA-Public Use
  Company Number: US-BAYER-2016-222372

PATIENT
  Age: 64 Year
  Sex: Male

DRUGS (3)
  1. NEXAVAR [Suspect]
     Active Substance: SORAFENIB
     Indication: HEPATOCELLULAR CARCINOMA
     Dosage: 400 MG, BID
     Route: 048
     Dates: start: 20161103, end: 20161115
  2. LACTULOSE. [Concomitant]
     Active Substance: LACTULOSE
  3. NEXAVAR [Suspect]
     Active Substance: SORAFENIB
     Indication: HEPATOCELLULAR CARCINOMA
     Dosage: 200 MG, BID
     Route: 048
     Dates: start: 20161116

REACTIONS (9)
  - Decreased appetite [Recovering/Resolving]
  - Fatigue [None]
  - Asthenia [None]
  - Diarrhoea [None]
  - Heart rate increased [None]
  - Fatigue [Not Recovered/Not Resolved]
  - Alopecia [None]
  - Blood pressure increased [None]
  - Nausea [Recovered/Resolved]

NARRATIVE: CASE EVENT DATE: 201611
